FAERS Safety Report 25528925 (Version 3)
Quarter: 2025Q3

REPORT INFORMATION
  Report Type: Spontaneous
  Country: JP (occurrence: JP)
  Receive Date: 20250708
  Receipt Date: 20250811
  Transmission Date: 20251021
  Serious: Yes (Death, Other)
  Sender: BRACCO
  Company Number: JP-BAYER-2025A085694

PATIENT
  Age: 75 Year
  Sex: Male

DRUGS (1)
  1. IOPAMIRON [Suspect]
     Active Substance: IOPAMIDOL
     Indication: Computerised tomogram
     Route: 042
     Dates: start: 20250625, end: 20250625

REACTIONS (4)
  - Anaphylactic shock [Fatal]
  - Ventricular fibrillation [Fatal]
  - Depressed level of consciousness [Fatal]
  - Feeling abnormal [Fatal]

NARRATIVE: CASE EVENT DATE: 20250625
